FAERS Safety Report 4868981-X (Version None)
Quarter: 2005Q4

REPORT INFORMATION
  Report Type: 
  Country: None (occurrence: None)
  Receive Date: 20051223
  Receipt Date: 20051215
  Transmission Date: 20060501
  Serious: Yes (Hospitalization)
  Sender: FDA-Public Use
  Company Number: 2005168462

PATIENT
  Age: 58 Year
  Sex: Male

DRUGS (3)
  1. ZOLOFT [Suspect]
     Indication: ILL-DEFINED DISORDER
     Dosage: 25 MG (25 MG, 1 IN 1 D), ORAL
     Route: 048
     Dates: start: 20050719, end: 20050803
  2. TAHOR (ATORVASTATIN) [Suspect]
     Indication: ILL-DEFINED DISORDER
     Dosage: ORAL
     Route: 048
     Dates: start: 20050415, end: 20050815
  3. INDOMETHACIN [Concomitant]

REACTIONS (4)
  - COLITIS COLLAGENOUS [None]
  - COLITIS ULCERATIVE [None]
  - MUSCLE SPASMS [None]
  - ORAL LICHEN PLANUS [None]
